FAERS Safety Report 6802029-2 (Version None)
Quarter: 2010Q2

REPORT INFORMATION
  Report Type: 
  Country: None (occurrence: None)
  Receive Date: 20100629
  Receipt Date: 20071015
  Transmission Date: 20101027
  Serious: Yes (Other)
  Sender: FDA-Public Use
  Company Number: US-PFIZER INC-2007004336

PATIENT
  Sex: Female
  Weight: 81.65 kg

DRUGS (6)
  1. TIKOSYN [Suspect]
     Indication: ATRIAL FIBRILLATION
     Dates: start: 20060916, end: 20060901
  2. TIKOSYN [Suspect]
     Dates: start: 20061201
  3. HYDROCHLOROTHIAZIDE [Concomitant]
     Indication: HYPERTENSION
     Dates: end: 20060101
  4. ZETIA [Concomitant]
     Indication: HYPERCHOLESTEROLAEMIA
  5. LOVASTATIN [Concomitant]
     Indication: HYPERCHOLESTEROLAEMIA
  6. SYNTHROID [Concomitant]

REACTIONS (3)
  - BLOOD PRESSURE INCREASED [None]
  - BRADYCARDIA [None]
  - PALPITATIONS [None]
